FAERS Safety Report 13257875 (Version 4)
Quarter: 2018Q1

REPORT INFORMATION
  Report Type: Spontaneous
  Country: US (occurrence: US)
  Receive Date: 20170221
  Receipt Date: 20180112
  Transmission Date: 20180508
  Serious: Yes (Hospitalization, Other)
  Sender: FDA-Public Use
  Company Number: US-LUNDBECK-DKLU2026569

PATIENT
  Age: 58 Year
  Sex: Female

DRUGS (3)
  1. NORTHERA [Suspect]
     Active Substance: DROXIDOPA
     Route: 065
     Dates: start: 20151223
  2. NORTHERA [Suspect]
     Active Substance: DROXIDOPA
     Route: 048
  3. NORTHERA [Suspect]
     Active Substance: DROXIDOPA
     Indication: AUTONOMIC FAILURE SYNDROME
     Dosage: TITRATION COMPLETE/SCHEDULE C
     Route: 065

REACTIONS (13)
  - Migraine [Unknown]
  - Malaise [Unknown]
  - Carpal tunnel syndrome [Unknown]
  - Contusion [Unknown]
  - Cardiac arrest [Unknown]
  - Insomnia [Unknown]
  - Fall [Unknown]
  - Blood pressure decreased [Unknown]
  - Intentional underdose [Unknown]
  - Asthenia [Unknown]
  - Asthenia [Unknown]
  - Dizziness [Unknown]
  - Fibromyalgia [Unknown]

NARRATIVE: CASE EVENT DATE: 201712
